APPROVED DRUG PRODUCT: FERRISELTZ
Active Ingredient: FERRIC AMMONIUM CITRATE
Strength: 600MG/PACKET
Dosage Form/Route: FOR SOLUTION;ORAL
Application: N020292 | Product #001
Applicant: OTSUKA PHARMACEUTICAL CO LTD
Approved: Oct 14, 1997 | RLD: No | RS: No | Type: DISCN